FAERS Safety Report 25250920 (Version 2)
Quarter: 2025Q3

REPORT INFORMATION
  Report Type: Report from Study
  Country: KR (occurrence: KR)
  Receive Date: 20250429
  Receipt Date: 20250709
  Transmission Date: 20251020
  Serious: Yes (Hospitalization, Other)
  Sender: ASTELLAS
  Company Number: KR-ASTELLAS-2024US020457

PATIENT
  Age: 56 Year
  Sex: Male
  Weight: 73 kg

DRUGS (18)
  1. GILTERITINIB [Suspect]
     Active Substance: GILTERITINIB
     Indication: Acute myeloid leukaemia recurrent
     Route: 048
     Dates: start: 20240628, end: 20240803
  2. GILTERITINIB [Suspect]
     Active Substance: GILTERITINIB
     Indication: FLT3 gene mutation
     Route: 048
     Dates: start: 20240812, end: 20240822
  3. LEVOTHYROXINE SODIUM [Concomitant]
     Active Substance: LEVOTHYROXINE SODIUM
     Indication: Hypothyroidism
     Dosage: ONGOING
     Route: 048
     Dates: start: 2023
  4. PARAMACET ER SEMI [Concomitant]
     Indication: Groin pain
     Dosage: ONGOING
     Route: 048
     Dates: start: 20240708
  5. FEBUXOSTAT [Concomitant]
     Active Substance: FEBUXOSTAT
     Indication: Hyperuricaemia
     Dosage: ONGOING
     Route: 048
     Dates: start: 20220425
  6. KANARBPLUS [Concomitant]
     Indication: Hypertension
     Dosage: ONGOING
     Route: 048
     Dates: start: 2022
  7. BORYUNGBIO ASTRIX [Concomitant]
     Indication: Amaurosis fugax
     Dosage: ONGOING
     Route: 048
     Dates: start: 2022
  8. Tenelia M SR [Concomitant]
     Indication: Diabetes mellitus
     Dosage: ONGOING?10/500 MG
     Route: 048
     Dates: start: 2022
  9. CYTARABINE [Concomitant]
     Active Substance: CYTARABINE
     Indication: Acute myeloid leukaemia
     Route: 042
     Dates: start: 20240627, end: 20240628
  10. TEICOCIN [Concomitant]
     Indication: Febrile neutropenia
     Route: 042
     Dates: start: 20240627, end: 20240705
  11. YUHAN MEROPEN [Concomitant]
     Indication: Febrile neutropenia
     Route: 042
     Dates: start: 20240627, end: 20240705
  12. GODEX [Concomitant]
     Indication: Liver function test increased
     Dosage: ONGOING
     Route: 048
     Dates: start: 20240628
  13. HEPA MERZ [Concomitant]
     Indication: Liver function test increased
     Dosage: ONGOING?500MG/5ML
     Route: 042
     Dates: start: 20240702
  14. URSODIOL [Concomitant]
     Active Substance: URSODIOL
     Indication: Liver function test increased
     Dosage: ONGOING
     Route: 048
     Dates: start: 20240701
  15. BORYUNG MAXIPIME [Concomitant]
     Indication: Prophylaxis
     Route: 042
     Dates: start: 20240706, end: 20240709
  16. CAL-D PLUS [Concomitant]
     Indication: Prophylaxis
     Dosage: ONGOING
     Route: 048
     Dates: start: 20230424
  17. DONG A SUPRAX [Concomitant]
     Indication: Prophylaxis
     Route: 048
     Dates: start: 20240710, end: 20240714
  18. OCUMETHOLONE [Concomitant]
     Indication: Prophylaxis
     Dosage: EYE
     Route: 047
     Dates: start: 20240628, end: 20240628

REACTIONS (4)
  - Febrile neutropenia [Recovered/Resolved]
  - Large intestinal ulcer haemorrhage [Recovered/Resolved]
  - Abscess limb [Not Recovered/Not Resolved]
  - Escherichia infection [Recovered/Resolved]

NARRATIVE: CASE EVENT DATE: 20240714
